FAERS Safety Report 11723767 (Version 3)
Quarter: 2016Q1

REPORT INFORMATION
  Report Type: Spontaneous
  Country: DE (occurrence: DE)
  Receive Date: 20151111
  Receipt Date: 20160224
  Transmission Date: 20160525
  Serious: Yes (Life-Threatening, Hospitalization)
  Sender: FDA-Public Use
  Company Number: DE-TEVA-607164GER

PATIENT
  Age: 39 Year
  Sex: Male
  Weight: 90 kg

DRUGS (4)
  1. PRAMIPEXOL [Concomitant]
     Active Substance: PRAMIPEXOLE
  2. AMOXICILLIN/CLAVULANSAEURE [Suspect]
     Active Substance: AMOXICILLIN\CLAVULANATE POTASSIUM
     Indication: PNEUMONIA
     Route: 048
     Dates: start: 20151020, end: 20151022
  3. CITALOPRAM [Concomitant]
     Active Substance: CITALOPRAM HYDROBROMIDE
     Dosage: 20 MILLIGRAM DAILY;
  4. PROMETHAZINE [Concomitant]
     Active Substance: PROMETHAZINE\PROMETHAZINE HYDROCHLORIDE
     Dosage: 15-15-15 GTT
     Route: 065
     Dates: start: 20151021

REACTIONS (2)
  - Acute hepatic failure [Not Recovered/Not Resolved]
  - Drug eruption [Unknown]

NARRATIVE: CASE EVENT DATE: 20151022
